FAERS Safety Report 6030047-3 (Version None)
Quarter: 2008Q4

REPORT INFORMATION
  Report Type: 
  Country: None (occurrence: None)
  Receive Date: 20081222
  Receipt Date: 20080915
  Transmission Date: 20090506
  Serious: Yes (Other)
  Sender: FDA-Public Use
  Company Number: US-WYE-H06012208

PATIENT
  Age: 49 Year
  Sex: Female

DRUGS (5)
  1. PRISTIQ [Suspect]
     Indication: DEPRESSION
     Dosage: 50 MG 1X PER 1 DAY, ORAL
     Route: 048
     Dates: start: 20080801, end: 20080901
  2. ZOLOFT [Concomitant]
  3. PROVIGIL [Concomitant]
  4. ZOLOFT [Concomitant]
  5. PROVIGIL [Concomitant]

REACTIONS (2)
  - HEADACHE [None]
  - PYREXIA [None]
